FAERS Safety Report 7261759-1 (Version None)
Quarter: 2011Q1

REPORT INFORMATION
  Report Type: 
  Country: None (occurrence: None)
  Receive Date: 20110130
  Receipt Date: 20101025
  Transmission Date: 20110831
  Serious: No
  Sender: FDA-Public Use
  Company Number: US-ABBOTT-10P-163-0681224-00

PATIENT
  Age: 63 Year
  Sex: Female

DRUGS (11)
  1. METFORMIN [Concomitant]
     Indication: DIABETES MELLITUS
  2. HUMIRA [Suspect]
     Indication: RHEUMATOID ARTHRITIS
     Dates: start: 20101011
  3. VITAMIN D [Concomitant]
     Indication: PRODUCT USED FOR UNKNOWN INDICATION
  4. NIZATIDINE [Concomitant]
     Indication: GASTRIC ULCER
  5. NEURAVENA [Concomitant]
     Indication: COGNITIVE DISORDER
  6. GLUCOTROL [Concomitant]
     Indication: DIABETES MELLITUS
  7. PREDNISONE [Concomitant]
     Indication: RHEUMATOID ARTHRITIS
  8. SULFASALAZINE [Concomitant]
     Indication: PRODUCT USED FOR UNKNOWN INDICATION
  9. GABAPENTIN [Concomitant]
     Indication: DIABETIC NEUROPATHY
  10. DETROL LA [Concomitant]
     Indication: PRODUCT USED FOR UNKNOWN INDICATION
  11. METHOTREXATE [Concomitant]
     Indication: RHEUMATOID ARTHRITIS
     Dosage: 10 TABLETS WEEKLY

REACTIONS (2)
  - FATIGUE [None]
  - DIZZINESS [None]
